FAERS Safety Report 23068857 (Version 1)
Quarter: 2023Q4

REPORT INFORMATION
  Report Type: Spontaneous
  Country: HK (occurrence: HK)
  Receive Date: 20231016
  Receipt Date: 20231016
  Transmission Date: 20240110
  Serious: Yes (Other)
  Sender: FDA-Public Use
  Company Number: HK-ASTELLAS-2023US030713

PATIENT
  Age: 50 Year
  Sex: Female

DRUGS (3)
  1. GILTERITINIB [Suspect]
     Active Substance: GILTERITINIB
     Indication: Acute myeloid leukaemia
     Route: 065
  2. GILTERITINIB [Suspect]
     Active Substance: GILTERITINIB
     Indication: FLT3 gene mutation
     Route: 065
  3. CYCLOSPORINE [Concomitant]
     Active Substance: CYCLOSPORINE
     Indication: Immunosuppression
     Dosage: UNK UNK, UNKNOWN FREQ.
     Route: 065

REACTIONS (2)
  - Cytopenia [Recovered/Resolved]
  - Myalgia [Unknown]
